FAERS Safety Report 9468635 (Version 1)
Quarter: 2013Q3

REPORT INFORMATION
  Report Type: Spontaneous
  Country: US (occurrence: US)
  Receive Date: 20130821
  Receipt Date: 20130821
  Transmission Date: 20140515
  Serious: Yes (Other)
  Sender: FDA-Public Use
  Company Number: US-BRISTOL-MYERS SQUIBB COMPANY-19187418

PATIENT
  Age: 47 Year
  Sex: Male
  Weight: 43.99 kg

DRUGS (11)
  1. ABATACEPT SUBQ INJECTION 125MG/ML [Suspect]
     Dosage: 4PKS
     Route: 058
  2. PREDNISONE [Concomitant]
     Dosage: TABS
  3. LEFLUNOMIDE [Concomitant]
     Dosage: TABS
  4. AMLODIPINE [Concomitant]
     Dosage: TABS
  5. HYDROCHLOROTHIAZIDE [Concomitant]
     Dosage: TABS
  6. OMEPRAZOLE [Concomitant]
     Dosage: CAPS
  7. VITAMIN D [Concomitant]
     Dosage: TABS?1DF: 1000 UNITS NOS
  8. CALTRATE [Concomitant]
     Dosage: 600TABS
  9. ZYRTEC [Concomitant]
  10. ALEVE [Concomitant]
     Dosage: CAP
  11. TYLENOL [Concomitant]
     Dosage: TABS

REACTIONS (1)
  - Foot fracture [Unknown]
